FAERS Safety Report 8928849 (Version 2)
Quarter: 2012Q4

REPORT INFORMATION
  Report Type: 
  Country: BE (occurrence: BE)
  Receive Date: 20121128
  Receipt Date: 20121219
  Transmission Date: 20130627
  Serious: Yes (Other)
  Sender: FDA-Public Use
  Company Number: BE-009507513-1211BEL009331

PATIENT
  Age: 23 Year
  Sex: Female

DRUGS (2)
  1. ZOELY [Suspect]
     Dosage: UNK, qd
     Route: 048
     Dates: start: 201201, end: 2012
  2. THYROID [Concomitant]

REACTIONS (1)
  - Inflammation [Not Recovered/Not Resolved]
